FAERS Safety Report 19406018 (Version 8)
Quarter: 2021Q3

REPORT INFORMATION
  Report Type: Report from Study
  Country: KR (occurrence: KR)
  Receive Date: 20210611
  Receipt Date: 20210910
  Transmission Date: 20211014
  Serious: Yes (Hospitalization)
  Sender: FDA-Public Use
  Company Number: KR-EISAI MEDICAL RESEARCH-EC-2021-094282

PATIENT
  Age: 63 Year
  Sex: Male
  Weight: 49.55 kg

DRUGS (10)
  1. CHLORPHENIRAMINE MALEATE. [Concomitant]
     Active Substance: CHLORPHENIRAMINE MALEATE
     Dates: start: 20210603, end: 20210603
  2. LENVATINIB [Suspect]
     Active Substance: LENVATINIB
     Dosage: STARTING DOSE: AT 14 MG; FLUCTUATED DOSAGE
     Route: 048
     Dates: start: 20210610
  3. CILNIDIPINE [Concomitant]
     Active Substance: CILNIDIPINE
     Dates: start: 20210513, end: 20210609
  4. FAMOTIDINE. [Concomitant]
     Active Substance: FAMOTIDINE
     Dates: start: 20210603, end: 20210603
  5. TRIGEL [ALUMINIUM OXIDE;MAGNESIUM OXIDE;OXETACAINE] [Concomitant]
     Dates: start: 20190523
  6. LENVATINIB [Suspect]
     Active Substance: LENVATINIB
     Indication: RENAL CELL CARCINOMA
     Route: 048
     Dates: start: 20210506, end: 20210601
  7. BELZUTIFAN. [Suspect]
     Active Substance: BELZUTIFAN
     Indication: RENAL CELL CARCINOMA
     Route: 048
     Dates: start: 20210506, end: 20210601
  8. BELZUTIFAN. [Suspect]
     Active Substance: BELZUTIFAN
     Dosage: STARTING DOSE: 120 MG, FLUCTUATED DOSAGE
     Route: 048
     Dates: start: 20210610
  9. NEXIUM [Concomitant]
     Active Substance: ESOMEPRAZOLE MAGNESIUM
     Dates: start: 20201008
  10. MUTERAN [Concomitant]
     Active Substance: ACETYLCYSTEINE
     Dates: start: 20210603, end: 20210603

REACTIONS (2)
  - Pneumonitis [Recovered/Resolved]
  - Alanine aminotransferase increased [Recovered/Resolved]

NARRATIVE: CASE EVENT DATE: 20210603
